FAERS Safety Report 10272045 (Version 1)
Quarter: 2014Q3

REPORT INFORMATION
  Report Type: Spontaneous
  Country: AU (occurrence: AU)
  Receive Date: 20140702
  Receipt Date: 20140702
  Transmission Date: 20150326
  Serious: Yes (Death, Other)
  Sender: FDA-Public Use
  Company Number: PHHY2014AU080121

PATIENT

DRUGS (2)
  1. IMATINIB [Suspect]
     Active Substance: IMATINIB
     Indication: MYELOID LEUKAEMIA
     Dosage: 400 MG, UNK
  2. IMATINIB [Suspect]
     Active Substance: IMATINIB
     Dosage: 300 MG, UNK

REACTIONS (4)
  - Thrombocytopenia [Unknown]
  - Haematotoxicity [Unknown]
  - Haemorrhage intracranial [Fatal]
  - Pancytopenia [Unknown]
